FAERS Safety Report 21005310 (Version 1)
Quarter: 2022Q2

REPORT INFORMATION
  Report Type: Spontaneous
  Country: CZ (occurrence: CZ)
  Receive Date: 20220624
  Receipt Date: 20220624
  Transmission Date: 20220721
  Serious: Yes (Other)
  Sender: FDA-Public Use
  Company Number: CZ-FreseniusKabi-FK202208509

PATIENT
  Age: 68 Year
  Sex: Male

DRUGS (3)
  1. LEUCOVORIN CALCIUM [Suspect]
     Active Substance: LEUCOVORIN CALCIUM
     Indication: Colon cancer metastatic
     Dosage: TREATED WITH FOLFOX CHEMOTHERAPY
     Dates: end: 200910
  2. OXALIPLATIN [Suspect]
     Active Substance: OXALIPLATIN
     Indication: Colorectal cancer metastatic
     Dosage: TREATED WITH FOLFOX CHEMOTHERAPY
     Dates: end: 200910
  3. FLUOROURACIL [Suspect]
     Active Substance: FLUOROURACIL
     Indication: Colon cancer metastatic

REACTIONS (2)
  - Neutropenia [Unknown]
  - Neuropathy peripheral [Unknown]
